FAERS Safety Report 18801735 (Version 1)
Quarter: 2021Q1

REPORT INFORMATION
  Report Type: Spontaneous
  Country: HR (occurrence: HR)
  Receive Date: 20210128
  Receipt Date: 20210128
  Transmission Date: 20210419
  Serious: Yes (Other)
  Sender: FDA-Public Use
  Company Number: HR-PFIZER INC-2021060162

PATIENT
  Age: 41 Year
  Sex: Male

DRUGS (1)
  1. ALPRAZOLAM. [Suspect]
     Active Substance: ALPRAZOLAM
     Dosage: 18 MG, 1X/DAY
     Route: 048
     Dates: start: 20201213, end: 20201213

REACTIONS (5)
  - Stupor [Unknown]
  - Suicide attempt [Unknown]
  - Somnolence [Unknown]
  - Respiratory depression [Unknown]
  - Intentional overdose [Unknown]

NARRATIVE: CASE EVENT DATE: 20201213
